FAERS Safety Report 8665279 (Version 2)
Quarter: 2012Q4

REPORT INFORMATION
  Report Type: 
  Country: US (occurrence: US)
  Receive Date: 20120716
  Receipt Date: 20120905
  Transmission Date: 20130627
  Serious: Yes (Death)
  Sender: FDA-Public Use
  Company Number: US-CELGENEUS-163-20785-12061588

PATIENT
  Age: 68 Year
  Sex: Female

DRUGS (13)
  1. THALOMID [Suspect]
     Indication: MULTIPLE MYELOMA WITHOUT MENTION OF REMISSION
     Dosage: 100 Milligram
     Route: 048
     Dates: start: 20111110, end: 20111207
  2. THALOMID [Suspect]
     Dosage: 100 Milligram
     Route: 048
     Dates: start: 20120206, end: 20120210
  3. THALOMID [Suspect]
     Dosage: 100 Milligram
     Route: 048
     Dates: start: 20120213, end: 20120610
  4. NITROFURANTOIN MACROCRYSTAL [Concomitant]
     Indication: DRUG USE FOR UNKNOWN INDICATION
     Route: 065
  5. CYTOXAN [Concomitant]
     Indication: MYELOMA
     Dosage: 50-100
     Route: 065
     Dates: start: 201005, end: 201206
  6. PREDNISONE [Concomitant]
     Indication: MYELOMA
     Dosage: 50
     Route: 065
     Dates: start: 201005, end: 201206
  7. ZOMETA [Concomitant]
     Indication: DRUG USE FOR UNKNOWN INDICATION
     Dosage: 4
     Route: 041
     Dates: start: 201005, end: 201206
  8. LANOXIN [Concomitant]
     Indication: CONGESTIVE HEART FAILURE
     Dosage: .25
     Route: 065
     Dates: start: 2009, end: 201206
  9. DILTIAZEM [Concomitant]
     Indication: DRUG USE FOR UNKNOWN INDICATION
     Route: 065
  10. COREG [Concomitant]
     Indication: DRUG USE FOR UNKNOWN INDICATION
     Route: 065
  11. LANTUS [Concomitant]
     Indication: DRUG USE FOR UNKNOWN INDICATION
     Route: 065
  12. PRADAXA [Concomitant]
     Indication: DRUG USE FOR UNKNOWN INDICATION
     Route: 065
  13. ADRIAMYCIN [Concomitant]
     Indication: DRUG USE FOR UNKNOWN INDICATION
     Dosage: 40
     Route: 041
     Dates: start: 20120605

REACTIONS (2)
  - Plasma cell myeloma [Fatal]
  - Cardiac failure [Fatal]
